FAERS Safety Report 4894780-9 (Version None)
Quarter: 2006Q1

REPORT INFORMATION
  Report Type: 
  Country: None (occurrence: None)
  Receive Date: 20060130
  Receipt Date: 20051219
  Transmission Date: 20060701
  Serious: Yes (Death, Life-Threatening, Hospitalization)
  Sender: FDA-Public Use
  Company Number: PHNR2005AU01724

PATIENT
  Sex: Male

DRUGS (1)
  1. CLOZARIL [Suspect]
     Indication: SCHIZOPHRENIA
     Dosage: 0 - 500 MG/DAY
     Dates: start: 19991129, end: 20051219

REACTIONS (3)
  - COAGULOPATHY [None]
  - DEEP VEIN THROMBOSIS [None]
  - MULTI-ORGAN FAILURE [None]
